FAERS Safety Report 13719900 (Version 1)
Quarter: 2017Q3

REPORT INFORMATION
  Report Type: Spontaneous
  Country: US (occurrence: US)
  Receive Date: 20170705
  Receipt Date: 20170705
  Transmission Date: 20171127
  Serious: No
  Sender: FDA-Public Use
  Company Number: US-MEDA-2017060052

PATIENT
  Sex: Female

DRUGS (1)
  1. PROCTOFOAM HC [Suspect]
     Active Substance: HYDROCORTISONE ACETATE\PRAMOXINE HYDROCHLORIDE
     Route: 061
     Dates: start: 20170414, end: 20170414

REACTIONS (2)
  - Application site pain [Unknown]
  - Manufacturing materials issue [Unknown]

NARRATIVE: CASE EVENT DATE: 20170414
